FAERS Safety Report 6774113-3 (Version None)
Quarter: 2010Q2

REPORT INFORMATION
  Report Type: 
  Country: None (occurrence: None)
  Receive Date: 20100616
  Receipt Date: 20100616
  Transmission Date: 20101027
  Serious: No
  Sender: FDA-Public Use
  Company Number: None

PATIENT
  Age: 22 Year
  Sex: Female
  Weight: 90.7194 kg

DRUGS (1)
  1. RISPERIDONE [Suspect]
     Dosage: 5 MG DAILY PO
     Route: 048

REACTIONS (1)
  - LIVER FUNCTION TEST ABNORMAL [None]
